FAERS Safety Report 4944406-0 (Version None)
Quarter: 2006Q1

REPORT INFORMATION
  Report Type: 
  Country: None (occurrence: None)
  Receive Date: 20060315
  Receipt Date: 20060308
  Transmission Date: 20060701
  Serious: Yes (Death)
  Sender: FDA-Public Use
  Company Number: US-BRISTOL-MYERS SQUIBB COMPANY-13307293

PATIENT
  Age: 88 Year
  Sex: Male
  Weight: 83 kg

DRUGS (7)
  1. GLUCOVANCE [Suspect]
     Indication: DIABETES MELLITUS
     Dosage: DOSAGE FORM = 1.25 MG / 250 MG
  2. PLAVIX [Suspect]
     Indication: CORONARY ARTERIAL STENT INSERTION
  3. ATENOLOL [Concomitant]
  4. ALTACE [Concomitant]
  5. ASPIRIN [Concomitant]
  6. FOLIC ACID [Concomitant]
  7. POTASSIUM CHLORIDE [Concomitant]

REACTIONS (2)
  - ANEURYSM [None]
  - MYOCARDIAL INFARCTION [None]
